FAERS Safety Report 8038369-1 (Version None)
Quarter: 2012Q1

REPORT INFORMATION
  Report Type: 
  Country: None (occurrence: None)
  Receive Date: 20120111
  Receipt Date: 20111208
  Transmission Date: 20120608
  Serious: No
  Sender: FDA-Public Use
  Company Number: US-AMGEN-USASP2011049262

PATIENT
  Age: 74 Year
  Sex: Female
  Weight: 60.317 kg

DRUGS (9)
  1. TRAMADOL HCL [Concomitant]
     Indication: PAIN
     Dosage: 50 MG, TID
     Route: 048
  2. XANAX [Concomitant]
     Indication: ANXIETY
     Dosage: 0.5 MG, QHS
     Route: 048
  3. ASPIRIN [Concomitant]
     Dosage: 81 MG, QD
     Route: 048
  4. VITAMIN D [Concomitant]
     Dosage: 50000 IU, QWK
     Route: 048
  5. VOLTAREN [Concomitant]
     Dosage: UNK
     Route: 061
  6. ENBREL [Suspect]
     Indication: RHEUMATOID ARTHRITIS
  7. ENBREL [Suspect]
     Indication: PSORIASIS
  8. ENBREL [Suspect]
     Indication: PSORIATIC ARTHROPATHY
     Dosage: 50 MG, 2 TIMES/WK
     Route: 058
     Dates: start: 20110702
  9. METHOTREXATE [Concomitant]

REACTIONS (6)
  - ABDOMINAL DISTENSION [None]
  - DRUG INEFFECTIVE [None]
  - ERUCTATION [None]
  - NASOPHARYNGITIS [None]
  - MALAISE [None]
  - NAUSEA [None]
